FAERS Safety Report 20512401 (Version 2)
Quarter: 2022Q1

REPORT INFORMATION
  Report Type: Spontaneous
  Country: JP (occurrence: JP)
  Receive Date: 20220224
  Receipt Date: 20220318
  Transmission Date: 20220423
  Serious: Yes (Hospitalization, Other)
  Sender: FDA-Public Use
  Company Number: JP-TEVA-2022-JP-2009274

PATIENT
  Age: 10 Year
  Sex: Female

DRUGS (5)
  1. ETOPOSIDE [Suspect]
     Active Substance: ETOPOSIDE
     Indication: CNS germinoma
     Route: 065
  2. CISPLATIN [Suspect]
     Active Substance: CISPLATIN
     Indication: CNS germinoma
     Dosage: RECEIVED FIRST AND THIRD CYCLES
     Route: 065
  3. METHOTREXATE [Suspect]
     Active Substance: METHOTREXATE
     Indication: CNS germinoma
     Dosage: RECEIVED FIRST CYCLE
     Route: 037
  4. CARBOPLATIN [Concomitant]
     Active Substance: CARBOPLATIN
     Indication: CNS germinoma
     Dosage: RECEIVED SECOND AND FOURTH CYCLE
     Route: 065
  5. MIDAZOLAM [Concomitant]
     Active Substance: MIDAZOLAM
     Indication: Status epilepticus
     Route: 065

REACTIONS (5)
  - Encephalitis autoimmune [Not Recovered/Not Resolved]
  - Cerebral salt-wasting syndrome [Recovered/Resolved]
  - Hyponatraemia [Recovered/Resolved]
  - Status epilepticus [Recovered/Resolved]
  - Cerebral atrophy [Unknown]
